FAERS Safety Report 9178930 (Version 1)
Quarter: 2013Q1

REPORT INFORMATION
  Report Type: Spontaneous
  Country: US (occurrence: US)
  Receive Date: 20130321
  Receipt Date: 20130321
  Transmission Date: 20140127
  Serious: Yes (Other)
  Sender: FDA-Public Use
  Company Number: US-BAYER-2013-032395

PATIENT
  Sex: Female

DRUGS (4)
  1. YASMIN [Suspect]
  2. YAZ [Suspect]
  3. TRAZODONE [Concomitant]
     Indication: SLEEP DISORDER
  4. LOESTRIN [Concomitant]
     Indication: ENDOMETRIOSIS

REACTIONS (1)
  - Retinal vein occlusion [Recovered/Resolved]
